FAERS Safety Report 8153140-8 (Version None)
Quarter: 2012Q1

REPORT INFORMATION
  Report Type: 
  Country: None (occurrence: None)
  Receive Date: 20120221
  Receipt Date: 20120208
  Transmission Date: 20120608
  Serious: Yes (Congenital Anomaly)
  Sender: FDA-Public Use
  Company Number: DE-UCBSA-051432

PATIENT
  Sex: Male
  Weight: 3.31 kg

DRUGS (3)
  1. KEPPRA [Suspect]
     Indication: EPILEPSY
     Dosage: 1000-0-1000
     Route: 064
     Dates: start: 20101231, end: 20110926
  2. TRILEPTAL [Suspect]
     Indication: EPILEPSY
     Dosage: 600-0-900
     Route: 064
     Dates: start: 20101231, end: 20110926
  3. CEFUROXIME [Suspect]
     Indication: STREPTOCOCCUS TEST POSITIVE
     Route: 064
     Dates: start: 20110101

REACTIONS (3)
  - FOETAL EXPOSURE DURING PREGNANCY [None]
  - TALIPES [None]
  - ATRIAL SEPTAL DEFECT [None]
